FAERS Safety Report 25737986 (Version 1)
Quarter: 2025Q3

REPORT INFORMATION
  Report Type: Report from Study
  Country: ZA (occurrence: ZA)
  Receive Date: 20250829
  Receipt Date: 20250829
  Transmission Date: 20251020
  Serious: Yes (Hospitalization)
  Sender: ABBVIE
  Company Number: ZA-ABBVIE-6434213

PATIENT
  Sex: Male

DRUGS (2)
  1. HUMIRA [Suspect]
     Active Substance: ADALIMUMAB
     Indication: Crohn^s disease
     Route: 058
     Dates: start: 20160208
  2. PANTOPRAZOLE SODIUM [Concomitant]
     Active Substance: PANTOPRAZOLE SODIUM
     Indication: Product used for unknown indication

REACTIONS (5)
  - Anorectal discomfort [Recovering/Resolving]
  - Crohn^s disease [Recovering/Resolving]
  - Anal abscess [Recovering/Resolving]
  - Proctalgia [Recovering/Resolving]
  - Anal fistula [Recovering/Resolving]
